FAERS Safety Report 15673662 (Version 1)
Quarter: 2018Q4

REPORT INFORMATION
  Report Type: Report from Study
  Country: US (occurrence: US)
  Receive Date: 20181129
  Receipt Date: 20181129
  Transmission Date: 20190205
  Serious: Yes (Hospitalization)
  Sender: FDA-Public Use
  Company Number: US-TAKEDA-2018MPI000763

PATIENT
  Age: 59 Year
  Sex: Male
  Weight: 108.8 kg

DRUGS (30)
  1. VALACYCLOVIR [Concomitant]
     Active Substance: VALACYCLOVIR HYDROCHLORIDE
     Dosage: 500 MG, UNK
     Dates: start: 20171211
  2. VALACYCLOVIR [Concomitant]
     Active Substance: VALACYCLOVIR HYDROCHLORIDE
     Dosage: 500 MG, UNK
     Dates: start: 20180211
  3. ENTECAVIR. [Concomitant]
     Active Substance: ENTECAVIR
     Dosage: 0.5 MG, UNK
     Dates: start: 20171217, end: 20180216
  4. SULFAMETHOXAZOLE AND TRIMETHOPRIM [Concomitant]
     Active Substance: SULFAMETHOXAZOLE\TRIMETHOPRIM
     Dosage: UNK
     Dates: start: 20170404, end: 20171211
  5. ENTECAVIR. [Concomitant]
     Active Substance: ENTECAVIR
     Dosage: 0.5 MG, UNK
     Dates: start: 20171116, end: 20171215
  6. BENADRYL [Concomitant]
     Active Substance: DIPHENHYDRAMINE HYDROCHLORIDE
     Dosage: UNK
     Route: 065
  7. PANTOPRAZOLE [Concomitant]
     Active Substance: PANTOPRAZOLE
     Dosage: UNK
     Route: 065
     Dates: start: 20171127
  8. VIRTUSSIN AC [Concomitant]
     Active Substance: CODEINE PHOSPHATE\GUAIFENESIN
     Dosage: UNK
     Dates: start: 20180129, end: 20180214
  9. LEVOFLOXACIN. [Concomitant]
     Active Substance: LEVOFLOXACIN
     Dosage: 750 MG, UNK
     Dates: start: 20180126, end: 20180209
  10. IXAZOMIB [Suspect]
     Active Substance: IXAZOMIB
     Dosage: 4 MG, UNK
     Route: 048
     Dates: start: 20171129
  11. TUMS                               /00193601/ [Concomitant]
     Active Substance: CALCIUM CARBONATE\MAGNESIUM CARBONATE\MAGNESIUM TRISILICATE
     Dosage: UNK
     Route: 065
  12. ASPIRIN                            /00002701/ [Concomitant]
     Active Substance: ASPIRIN
     Dosage: UNK
     Route: 065
  13. ZOLPIDEM [Concomitant]
     Active Substance: ZOLPIDEM\ZOLPIDEM TARTRATE
     Dosage: 10 MG, UNK
     Dates: start: 20171030, end: 20171229
  14. ATOVAQUONE. [Concomitant]
     Active Substance: ATOVAQUONE
     Dosage: UNK
     Dates: start: 20171101
  15. SULFAMETHOXAZOLE AND TRIMETHOPRIM [Concomitant]
     Active Substance: SULFAMETHOXAZOLE\TRIMETHOPRIM
     Dosage: UNK
     Dates: start: 20171031, end: 20171226
  16. IXAZOMIB [Suspect]
     Active Substance: IXAZOMIB
     Dosage: 4 MG, UNK
     Route: 048
     Dates: start: 20171128
  17. DEXAMETHASONE. [Suspect]
     Active Substance: DEXAMETHASONE
     Indication: PRODUCT USED FOR UNKNOWN INDICATION
     Dosage: 4 MG, UNK
     Route: 065
     Dates: start: 20171109
  18. POMALYST [Suspect]
     Active Substance: POMALIDOMIDE
     Indication: PRODUCT USED FOR UNKNOWN INDICATION
     Dosage: UNK
     Route: 065
  19. VALACYCLOVIR [Concomitant]
     Active Substance: VALACYCLOVIR HYDROCHLORIDE
     Dosage: 500 MG, UNK
     Dates: start: 20170916, end: 20171214
  20. ZOLPIDEM [Concomitant]
     Active Substance: ZOLPIDEM\ZOLPIDEM TARTRATE
     Dosage: 10 MG, UNK
     Dates: start: 20180125
  21. TRAMADOL HYDROCHLORIDE. [Concomitant]
     Active Substance: TRAMADOL HYDROCHLORIDE
     Dosage: 50 MG, UNK
     Dates: start: 20180129, end: 20180214
  22. POTASSIUM CHLORIDE. [Concomitant]
     Active Substance: POTASSIUM CHLORIDE
     Dosage: UNK
     Route: 065
  23. VALACYCLOVIR [Concomitant]
     Active Substance: VALACYCLOVIR HYDROCHLORIDE
     Dosage: 500 MG, UNK
     Dates: start: 20180113, end: 20180209
  24. AZITHROMYCIN ANHYDROUS. [Concomitant]
     Active Substance: AZITHROMYCIN ANHYDROUS
     Dosage: UNK
     Route: 065
  25. FUROSEMIDE. [Concomitant]
     Active Substance: FUROSEMIDE
     Dosage: UNK
     Route: 065
  26. IXAZOMIB [Suspect]
     Active Substance: IXAZOMIB
     Indication: PLASMA CELL MYELOMA
     Dosage: 4 MG, UNK
     Route: 048
     Dates: start: 20171125
  27. ALPRAZOLAM. [Concomitant]
     Active Substance: ALPRAZOLAM
     Dosage: UNK
     Route: 065
     Dates: start: 20180213
  28. LEVOFLOXACIN. [Concomitant]
     Active Substance: LEVOFLOXACIN
     Dosage: 500 MG, UNK
     Dates: start: 20180125, end: 20180208
  29. ENTECAVIR. [Concomitant]
     Active Substance: ENTECAVIR
     Dosage: 0.5 MG, UNK
     Dates: start: 20171121, end: 20180120
  30. ENTECAVIR. [Concomitant]
     Active Substance: ENTECAVIR
     Dosage: 0.5 MG, UNK
     Dates: start: 20170916, end: 20171215

REACTIONS (7)
  - Off label use [Unknown]
  - Neuropathy peripheral [Not Recovered/Not Resolved]
  - Viral infection [Unknown]
  - Dyspepsia [Unknown]
  - Diarrhoea [Not Recovered/Not Resolved]
  - Influenza [Not Recovered/Not Resolved]
  - Product physical issue [Unknown]

NARRATIVE: CASE EVENT DATE: 20180120
